FAERS Safety Report 8902338 (Version 1)
Quarter: 2012Q4

REPORT INFORMATION
  Report Type: Report from Study
  Country: SG (occurrence: SG)
  Receive Date: 20121112
  Receipt Date: 20121112
  Transmission Date: 20130627
  Serious: Yes (Hospitalization, Other)
  Sender: FDA-Public Use
  Company Number: SG-ASTELLAS-2012US010933

PATIENT

DRUGS (3)
  1. ERLOTINIB TABLET [Suspect]
     Indication: NON-SMALL CELL LUNG CANCER
     Dosage: 100 mg, UID/QD
     Route: 048
     Dates: end: 20120503
  2. ERLOTINIB TABLET [Suspect]
     Dosage: 100 mg, UID/QD
     Route: 048
     Dates: start: 20120505
  3. NAVELBINE [Suspect]
     Indication: NON-SMALL CELL LUNG CANCER
     Dosage: UNK
     Route: 048

REACTIONS (6)
  - Incorrect dose administered [Unknown]
  - Haemoptysis [Recovered/Resolved]
  - Vascular pseudoaneurysm [Recovered/Resolved]
  - Escherichia urinary tract infection [Recovered/Resolved]
  - Diarrhoea [Unknown]
  - Lower respiratory tract infection [Recovered/Resolved]
